FAERS Safety Report 9834024 (Version 1)
Quarter: 2014Q1

REPORT INFORMATION
  Report Type: Spontaneous
  Country: US (occurrence: US)
  Receive Date: 20140122
  Receipt Date: 20140122
  Transmission Date: 20141002
  Serious: No
  Sender: FDA-Public Use
  Company Number: US-JNJFOC-20140104200

PATIENT
  Sex: Female
  Weight: 60.78 kg

DRUGS (2)
  1. DURAGESIC [Suspect]
     Indication: BACK PAIN
     Dosage: 2X100UG/HR PATCHES
     Route: 062
  2. DURAGESIC [Suspect]
     Indication: BACK PAIN
     Route: 062

REACTIONS (6)
  - Product adhesion issue [Unknown]
  - Wrong technique in drug usage process [Unknown]
  - Poor quality drug administered [Unknown]
  - Product physical issue [Unknown]
  - Drug dose omission [Unknown]
  - Product packaging issue [Unknown]
